FAERS Safety Report 7401041-2 (Version None)
Quarter: 2011Q1

REPORT INFORMATION
  Report Type: 
  Country: None (occurrence: None)
  Receive Date: 20110329
  Receipt Date: 20110215
  Transmission Date: 20110831
  Serious: Yes (Death)
  Sender: FDA-Public Use
  Company Number: AE 2011-097

PATIENT
  Age: 47 Year
  Sex: Male

DRUGS (1)
  1. FAZACLO ODT [Suspect]
     Dosage: 500 MG DAILY PO
     Route: 048
     Dates: start: 20081223

REACTIONS (1)
  - DEATH [None]
